FAERS Safety Report 11142457 (Version 18)
Quarter: 2018Q1

REPORT INFORMATION
  Report Type: Report from Study
  Country: CA (occurrence: CA)
  Receive Date: 20150527
  Receipt Date: 20180112
  Transmission Date: 20180508
  Serious: Yes (Hospitalization)
  Sender: FDA-Public Use
  Company Number: PHHY2015CA035467

PATIENT
  Age: 82 Year
  Sex: Male

DRUGS (5)
  1. SANDOSTATIN [Suspect]
     Active Substance: OCTREOTIDE ACETATE
     Indication: SMALL INTESTINE CARCINOMA METASTATIC
     Dosage: 100 UG, (TEST DOSE ONCE)
     Route: 058
     Dates: start: 20150317, end: 20150317
  2. DOCUSATE SODIUM. [Concomitant]
     Active Substance: DOCUSATE SODIUM
     Indication: CONSTIPATION
     Dosage: 2 DF, QD
     Route: 065
  3. FERROUS SULFATE. [Concomitant]
     Active Substance: FERROUS SULFATE
     Indication: PRODUCT USED FOR UNKNOWN INDICATION
     Route: 065
  4. SANDOSTATIN LAR DEPOT [Suspect]
     Active Substance: OCTREOTIDE ACETATE
     Indication: SMALL INTESTINE CARCINOMA METASTATIC
     Dosage: 30 MG, QMO (EVERY 4 WEEKS)
     Route: 030
     Dates: start: 20150413
  5. ASPIRIN. [Concomitant]
     Active Substance: ASPIRIN
     Indication: PRODUCT USED FOR UNKNOWN INDICATION
     Dosage: 81 MG, UNK
     Route: 065

REACTIONS (22)
  - Blood pressure diastolic decreased [Unknown]
  - Chest discomfort [Unknown]
  - Pain [Recovering/Resolving]
  - Pruritus generalised [Unknown]
  - Abdominal discomfort [Unknown]
  - Drug ineffective [Unknown]
  - Asthenia [Unknown]
  - Cough [Recovering/Resolving]
  - Injection site mass [Recovering/Resolving]
  - Product use in unapproved indication [Unknown]
  - Haemoglobin decreased [Unknown]
  - Flatulence [Unknown]
  - Diarrhoea [Recovered/Resolved]
  - Dyspnoea [Recovering/Resolving]
  - Diarrhoea [Unknown]
  - Heart rate decreased [Unknown]
  - Body temperature decreased [Unknown]
  - Frequent bowel movements [Unknown]
  - Abdominal distension [Unknown]
  - Blood pressure systolic increased [Unknown]
  - Fatigue [Unknown]
  - Injection site pain [Unknown]

NARRATIVE: CASE EVENT DATE: 20150317
